FAERS Safety Report 17442965 (Version 1)
Quarter: 2020Q1

REPORT INFORMATION
  Report Type: Spontaneous
  Country: US (occurrence: US)
  Receive Date: 20200205
  Receipt Date: 20200205
  Transmission Date: 20200409
  Serious: Yes (Other)
  Sender: FDA-Public Use
  Company Number: None

PATIENT
  Age: 62 Year
  Sex: Female
  Weight: 45.36 kg

DRUGS (22)
  1. VITAMIN D2 [Concomitant]
     Active Substance: ERGOCALCIFEROL
  2. PROBIOTIC [Concomitant]
     Active Substance: PROBIOTICS NOS
  3. PREBIOTIC [Concomitant]
  4. OXYCODONE/ACETAMINOPHEN 10-325MG [Suspect]
     Active Substance: ACETAMINOPHEN\OXYCODONE HYDROCHLORIDE
     Indication: INTERVERTEBRAL DISC DEGENERATION
     Dosage: ?          QUANTITY:1 DF DOSAGE FORM;OTHER FREQUENCY:EVERY 6 HRS 3 X DA;?
     Route: 048
     Dates: start: 20200114, end: 20200117
  5. CYANOCOBALAMIN. [Concomitant]
     Active Substance: CYANOCOBALAMIN
  6. Q-10 [Concomitant]
  7. OXYCODONE/ACETAMINOPHEN 10-325MG [Suspect]
     Active Substance: ACETAMINOPHEN\OXYCODONE HYDROCHLORIDE
     Indication: BACK PAIN
  8. MULTI VIT [Concomitant]
     Active Substance: VITAMINS
  9. VISION FORMULA 50+ [Concomitant]
  10. OXYCODONE/ACETAMINOPHEN 10-325MG [Suspect]
     Active Substance: ACETAMINOPHEN\OXYCODONE HYDROCHLORIDE
     Indication: MULTIPLE SCLEROSIS
  11. LISINOPRIL. [Concomitant]
     Active Substance: LISINOPRIL
  12. VOLTAREN TOPICAL [Concomitant]
  13. TURMERIC CURCUMIN [Concomitant]
     Active Substance: HERBALS\TURMERIC
  14. DOCUSATE SODIUM. [Concomitant]
     Active Substance: DOCUSATE SODIUM
  15. ASPIRN (BABY) [Concomitant]
  16. TRAZODONE [Concomitant]
     Active Substance: TRAZODONE HYDROCHLORIDE
  17. B-COMPLEX-SCHWARTZ [Concomitant]
  18. FISH OIL WITH OMEGA [Concomitant]
  19. CALCIUM, MAGNESIUM AND ZINC [Concomitant]
  20. MILK THISTLE [Concomitant]
     Active Substance: DIETARY SUPPLEMENT\HERBALS\MILK THISTLE
  21. OXYCODONE/ACETAMINOPHEN 10-325MG [Suspect]
     Active Substance: ACETAMINOPHEN\OXYCODONE HYDROCHLORIDE
     Indication: ARTHRITIS
  22. VITAMIN E [Concomitant]
     Active Substance: .ALPHA.-TOCOPHEROL

REACTIONS (7)
  - Headache [None]
  - Taste disorder [None]
  - Vomiting [None]
  - Abdominal distension [None]
  - Product substitution issue [None]
  - Nausea [None]
  - Dyspepsia [None]

NARRATIVE: CASE EVENT DATE: 20200114
